FAERS Safety Report 6626677-8 (Version None)
Quarter: 2010Q1

REPORT INFORMATION
  Report Type: 
  Country: None (occurrence: None)
  Receive Date: 20100308
  Receipt Date: 20100226
  Transmission Date: 20100710
  Serious: Yes (Other)
  Sender: FDA-Public Use
  Company Number: VISP-NO-1003S-0101

PATIENT
  Age: 46 Year
  Sex: Female

DRUGS (5)
  1. VISIPAQUE [Suspect]
     Indication: DRUG USE FOR UNKNOWN INDICATION
     Dosage: 20 ML, SINGLE DOSE, I.T.
     Route: 037
     Dates: start: 20091007, end: 20091007
  2. LEVOTHYROX [Concomitant]
  3. TRUVADA [Concomitant]
  4. LEVEMIR [Concomitant]
  5. LYRICA [Concomitant]

REACTIONS (7)
  - HEADACHE [None]
  - MENINGISM [None]
  - MENINGITIS [None]
  - MUSCULOSKELETAL STIFFNESS [None]
  - PHONOPHOBIA [None]
  - TINNITUS [None]
  - VOMITING [None]
